FAERS Safety Report 21559157 (Version 1)
Quarter: 2022Q4

REPORT INFORMATION
  Report Type: Spontaneous
  Country: US (occurrence: US)
  Receive Date: 20221107
  Receipt Date: 20221107
  Transmission Date: 20230113
  Serious: Yes (Death, Life-Threatening, Hospitalization, Other)
  Sender: FDA-Public Use
  Company Number: US-LUPIN PHARMACEUTICALS INC.-2022-13060

PATIENT
  Age: 32 Year
  Sex: Female

DRUGS (1)
  1. CLOBAZAM [Suspect]
     Active Substance: CLOBAZAM
     Indication: Partial seizures
     Dosage: UNK
     Route: 048

REACTIONS (14)
  - Cardiac arrest [Fatal]
  - Suicidal ideation [Fatal]
  - Intentional product misuse [Fatal]
  - Toxicity to various agents [Fatal]
  - Diabetic ketoacidosis [Fatal]
  - Hyponatraemia [Fatal]
  - Pulmonary embolism [Fatal]
  - Pneumonia necrotising [Fatal]
  - Brain death [Fatal]
  - Respiratory arrest [Fatal]
  - Brain injury [Fatal]
  - Drug level increased [Fatal]
  - Unresponsive to stimuli [Fatal]
  - Off label use [Unknown]
